FAERS Safety Report 15012352 (Version 1)
Quarter: 2018Q2

REPORT INFORMATION
  Report Type: Spontaneous
  Country: FR (occurrence: FR)
  Receive Date: 20180614
  Receipt Date: 20180614
  Transmission Date: 20180711
  Serious: Yes (Hospitalization)
  Sender: FDA-Public Use
  Company Number: FR-PFIZER INC-2018240432

PATIENT
  Sex: Male
  Weight: 3.26 kg

DRUGS (1)
  1. ZOLOFT [Suspect]
     Active Substance: SERTRALINE HYDROCHLORIDE
     Indication: OBSESSIVE-COMPULSIVE DISORDER
     Dosage: 100 MG, 1X/DAY
     Route: 064
     Dates: start: 20150611, end: 20160223

REACTIONS (4)
  - Bradycardia [Recovered/Resolved]
  - Respiratory distress [Recovered/Resolved]
  - Hypoglycaemia [Recovered/Resolved]
  - Maternal exposure during pregnancy [Unknown]

NARRATIVE: CASE EVENT DATE: 20160223
